FAERS Safety Report 20659712 (Version 1)
Quarter: 2022Q1

REPORT INFORMATION
  Report Type: Spontaneous
  Country: US (occurrence: US)
  Receive Date: 20220331
  Receipt Date: 20220331
  Transmission Date: 20220423
  Serious: No
  Sender: FDA-Public Use
  Company Number: US-INSUD PHARMA-2203US00982

PATIENT

DRUGS (2)
  1. PROGESTERONE [Suspect]
     Active Substance: PROGESTERONE
     Indication: Hormone replacement therapy
     Dosage: TOOK 1
     Route: 048
     Dates: start: 202203
  2. PROGESTERONE [Suspect]
     Active Substance: PROGESTERONE
     Dosage: UNKNOWN
     Route: 048
     Dates: end: 20220303

REACTIONS (4)
  - Malaise [Unknown]
  - Product odour abnormal [Unknown]
  - Product dose omission issue [Unknown]
  - Product use in unapproved indication [Unknown]

NARRATIVE: CASE EVENT DATE: 20220301
